FAERS Safety Report 20632157 (Version 4)
Quarter: 2022Q2

REPORT INFORMATION
  Report Type: Report from Study
  Country: BR (occurrence: BR)
  Receive Date: 20220324
  Receipt Date: 20220620
  Transmission Date: 20220721
  Serious: Yes (Life-Threatening, Hospitalization, Other)
  Sender: FDA-Public Use
  Company Number: BR-NOVARTISPH-NVSC2020BR082824

PATIENT
  Age: 62 Year
  Sex: Male

DRUGS (9)
  1. COSENTYX [Suspect]
     Active Substance: SECUKINUMAB
     Indication: Psoriatic arthropathy
     Dosage: UNK
     Route: 065
     Dates: start: 20170802
  2. COSENTYX [Suspect]
     Active Substance: SECUKINUMAB
     Dosage: 300 MG
     Route: 065
     Dates: start: 20170803
  3. COSENTYX [Suspect]
     Active Substance: SECUKINUMAB
     Dosage: UNK
     Route: 065
     Dates: start: 20200311
  4. COSENTYX [Suspect]
     Active Substance: SECUKINUMAB
     Dosage: UNK
     Route: 065
     Dates: start: 20210113
  5. COSENTYX [Suspect]
     Active Substance: SECUKINUMAB
     Dosage: 300 MG, UNKNOWN
     Route: 065
     Dates: start: 20210513
  6. COSENTYX [Suspect]
     Active Substance: SECUKINUMAB
     Dosage: UNK
     Route: 065
     Dates: start: 20220213
  7. COSENTYX [Suspect]
     Active Substance: SECUKINUMAB
     Dosage: 600 UNK
     Route: 065
  8. COSENTYX [Suspect]
     Active Substance: SECUKINUMAB
     Dosage: 300 UNK
     Route: 065
  9. COSENTYX [Suspect]
     Active Substance: SECUKINUMAB
     Dosage: UNK, QMO (2 AMPOULES)
     Route: 058
     Dates: start: 201701, end: 202204

REACTIONS (40)
  - Feeling abnormal [Recovering/Resolving]
  - Meningitis [Recovered/Resolved with Sequelae]
  - Vomiting [Unknown]
  - Illness [Unknown]
  - Unevaluable event [Unknown]
  - Loss of consciousness [Recovering/Resolving]
  - Deafness [Recovering/Resolving]
  - Paresis [Unknown]
  - Pneumonia bacterial [Recovered/Resolved]
  - Diabetes mellitus [Recovered/Resolved]
  - Malaise [Recovering/Resolving]
  - Hyperglycaemia [Recovering/Resolving]
  - Coma [Unknown]
  - Aphasia [Unknown]
  - Gait inability [Unknown]
  - Pneumonia [Not Recovered/Not Resolved]
  - Meningitis [Recovering/Resolving]
  - Pneumonia bacterial [Recovering/Resolving]
  - Syncope [Unknown]
  - Decreased immune responsiveness [Unknown]
  - Hyperhidrosis [Recovering/Resolving]
  - Skin odour abnormal [Recovering/Resolving]
  - Vaccination site exfoliation [Unknown]
  - Ear inflammation [Unknown]
  - Hypoaesthesia [Recovering/Resolving]
  - Condition aggravated [Recovering/Resolving]
  - Bone disorder [Recovering/Resolving]
  - Skin disorder [Recovering/Resolving]
  - Psoriasis [Not Recovered/Not Resolved]
  - Atrophy [Recovering/Resolving]
  - Musculoskeletal stiffness [Recovering/Resolving]
  - Skin discolouration [Not Recovered/Not Resolved]
  - Hypoacusis [Not Recovered/Not Resolved]
  - Wrong technique in product usage process [Unknown]
  - Accidental exposure to product [Unknown]
  - Device issue [Unknown]
  - Product odour abnormal [Recovering/Resolving]
  - Extra dose administered [Unknown]
  - Therapeutic product effect incomplete [Unknown]
  - Product prescribing error [Unknown]

NARRATIVE: CASE EVENT DATE: 20200210
